FAERS Safety Report 8206430-4 (Version None)
Quarter: 2012Q1

REPORT INFORMATION
  Report Type: 
  Country: None (occurrence: None)
  Receive Date: 20120313
  Receipt Date: 20120309
  Transmission Date: 20120608
  Serious: Yes (Death, Hospitalization)
  Sender: FDA-Public Use
  Company Number: PHEH2012US005431

PATIENT
  Sex: Male

DRUGS (1)
  1. RECLAST [Suspect]
     Indication: OSTEOPENIA
     Dosage: 5 MG, UNK
     Route: 042

REACTIONS (4)
  - LUNG NEOPLASM MALIGNANT [None]
  - SEPTIC SHOCK [None]
  - INTESTINAL PERFORATION [None]
  - CLOSTRIDIAL INFECTION [None]
